FAERS Safety Report 17162119 (Version 3)
Quarter: 2025Q3

REPORT INFORMATION
  Report Type: Spontaneous
  Country: EU (occurrence: EU)
  Receive Date: 20191217
  Receipt Date: 20250815
  Transmission Date: 20251020
  Serious: Yes (Other)
  Sender: AUROBINDO
  Company Number: EU-ASTRAZENECA-2019SF69596

PATIENT
  Age: 44 Year
  Sex: Female

DRUGS (10)
  1. AMITRIPTYLINE [Suspect]
     Active Substance: AMITRIPTYLINE
     Indication: Prophylaxis
     Route: 065
  2. AMITRIPTYLINE [Suspect]
     Active Substance: AMITRIPTYLINE
     Indication: Migraine with aura
  3. PROPRANOLOL [Suspect]
     Active Substance: PROPRANOLOL HYDROCHLORIDE
     Indication: Prophylaxis
     Route: 065
  4. PROPRANOLOL [Suspect]
     Active Substance: PROPRANOLOL HYDROCHLORIDE
     Indication: Migraine with aura
  5. TOPIRAMATE [Suspect]
     Active Substance: TOPIRAMATE
     Indication: Prophylaxis
     Route: 065
  6. TOPIRAMATE [Suspect]
     Active Substance: TOPIRAMATE
     Indication: Migraine with aura
  7. BOTULINUM TOXIN TYPE A [Suspect]
     Active Substance: BOTULINUM TOXIN TYPE A
     Indication: Prophylaxis
     Route: 065
  8. BOTULINUM TOXIN TYPE A [Suspect]
     Active Substance: BOTULINUM TOXIN TYPE A
     Indication: Migraine with aura
  9. FLUNARIZINE [Suspect]
     Active Substance: FLUNARIZINE
     Indication: Prophylaxis
     Route: 065
  10. FLUNARIZINE [Suspect]
     Active Substance: FLUNARIZINE
     Indication: Migraine with aura

REACTIONS (6)
  - Hypoacusis [Unknown]
  - Drug intolerance [Unknown]
  - Tinnitus [Unknown]
  - Vertigo [Recovering/Resolving]
  - Adverse drug reaction [Unknown]
  - Off label use [Unknown]
